FAERS Safety Report 8256347-4 (Version None)
Quarter: 2012Q2

REPORT INFORMATION
  Report Type: 
  Country: None (occurrence: None)
  Receive Date: 20120403
  Receipt Date: 20120319
  Transmission Date: 20120825
  Serious: Yes (Death, Hospitalization)
  Sender: FDA-Public Use
  Company Number: NL-BAXTER-2012BAX000570

PATIENT
  Age: 81 Year
  Sex: Male

DRUGS (3)
  1. PHYSIONEAL 40 GLUCOSE 1.36% W/V / 13.6 MG/ML [Suspect]
     Route: 033
     Dates: start: 20080203
  2. NUTRINEAL [Suspect]
     Route: 033
     Dates: start: 20080203
  3. EXTRANEAL [Suspect]
     Route: 033
     Dates: start: 20080203

REACTIONS (2)
  - DISEASE COMPLICATION [None]
  - NEOPLASM MALIGNANT [None]
